FAERS Safety Report 6871639-9 (Version None)
Quarter: 2010Q3

REPORT INFORMATION
  Report Type: 
  Country: None (occurrence: None)
  Receive Date: 20100723
  Receipt Date: 20100708
  Transmission Date: 20110219
  Serious: Yes (Other)
  Sender: FDA-Public Use
  Company Number: FR-BAYER-201032363GPV

PATIENT
  Age: 55 Year
  Sex: Male

DRUGS (3)
  1. SORAFENIB [Suspect]
     Indication: RENAL CELL CARCINOMA
     Dosage: TOTAL DAILY DOSE: 800 MG  UNIT DOSE: 200 MG
     Dates: end: 20090301
  2. SORAFENIB [Suspect]
     Dosage: TOTAL DAILY DOSE: 400 MG  UNIT DOSE: 200 MG
  3. SORAFENIB [Suspect]
     Dosage: TOTAL DAILY DOSE: 800 MG  UNIT DOSE: 200 MG
     Dates: end: 20080101

REACTIONS (8)
  - ASTHENIA [None]
  - DRUG TOLERANCE [None]
  - GENERAL PHYSICAL HEALTH DETERIORATION [None]
  - NECROSIS [None]
  - PALMAR-PLANTAR ERYTHRODYSAESTHESIA SYNDROME [None]
  - RASH PAPULAR [None]
  - RECALL PHENOMENON [None]
  - SKIN TOXICITY [None]
